FAERS Safety Report 4472703-4 (Version None)
Quarter: 2004Q4

REPORT INFORMATION
  Report Type: 
  Country: None (occurrence: None)
  Receive Date: 20041012
  Receipt Date: 20041012
  Transmission Date: 20050328
  Serious: Yes (Hospitalization)
  Sender: FDA-Public Use
  Company Number: None

PATIENT
  Age: 70 Year
  Sex: Female
  Weight: 99.3377 kg

DRUGS (1)
  1. FOSINOPRIL SODIUM [Suspect]
     Dosage: UNKNOWN
     Route: 065
     Dates: start: 20030731, end: 20031117

REACTIONS (1)
  - SWOLLEN TONGUE [None]
